FAERS Safety Report 13530005 (Version 2)
Quarter: 2018Q4

REPORT INFORMATION
  Report Type: Spontaneous
  Country: GB (occurrence: GB)
  Receive Date: 20170509
  Receipt Date: 20181114
  Transmission Date: 20190204
  Serious: Yes (Disabling, Other)
  Sender: FDA-Public Use
  Company Number: GB-XIROMED, LLC-2020491

PATIENT
  Age: 71 Year
  Sex: Female
  Weight: 57.15 kg

DRUGS (9)
  1. OMEPRAZOLE. [Suspect]
     Active Substance: OMEPRAZOLE
     Dosage: UNKNOWN
     Route: 065
     Dates: start: 2006
  2. VALIUM [Concomitant]
     Active Substance: DIAZEPAM
     Indication: MENIERE^S DISEASE
     Dosage: UNKNOWN
     Route: 065
  3. IODINE. [Concomitant]
     Active Substance: IODINE
     Indication: MENIERE^S DISEASE
     Dosage: UNKNOWN
     Route: 065
  4. LANSOPRAZOLE. [Suspect]
     Active Substance: LANSOPRAZOLE
     Indication: GASTROOESOPHAGEAL REFLUX DISEASE
     Dosage: UNKNOWN
     Route: 048
     Dates: start: 20130101, end: 20160111
  5. QUININE [Concomitant]
     Active Substance: QUININE
     Indication: MENIERE^S DISEASE
     Dosage: UNKNOWN
     Route: 065
  6. GAVISCON [Suspect]
     Active Substance: ALUMINUM HYDROXIDE\MAGNESIUM CARBONATE
     Indication: GASTROOESOPHAGEAL REFLUX DISEASE
     Dosage: UNKNOWN
     Route: 048
     Dates: start: 20130101, end: 20160111
  7. OMEPRAZOLE. [Suspect]
     Active Substance: OMEPRAZOLE
     Indication: GASTROOESOPHAGEAL REFLUX DISEASE
     Dosage: UNKNOWN
     Route: 048
     Dates: start: 20130101, end: 20160111
  8. BUCCASTEM [Concomitant]
     Active Substance: PROCHLORPERAZINE MALEATE
     Indication: MENIERE^S DISEASE
     Dosage: UNKNOWN
     Route: 065
  9. PROCHLORPERAZINE. [Concomitant]
     Active Substance: PROCHLORPERAZINE
     Indication: MENIERE^S DISEASE
     Dosage: UNKNOWN
     Route: 065

REACTIONS (9)
  - Muscle spasms [Recovering/Resolving]
  - Flatulence [Recovering/Resolving]
  - Accidental overdose [Recovered/Resolved]
  - Gastrooesophageal reflux disease [Recovering/Resolving]
  - Abdominal distension [Recovering/Resolving]
  - Product label confusion [Recovered/Resolved]
  - Drug hypersensitivity [Recovering/Resolving]
  - Eructation [Recovering/Resolving]
  - Abdominal pain upper [Recovering/Resolving]
